FAERS Safety Report 12467545 (Version 1)
Quarter: 2016Q2

REPORT INFORMATION
  Report Type: Spontaneous
  Country: PL (occurrence: PL)
  Receive Date: 20160615
  Receipt Date: 20160615
  Transmission Date: 20160815
  Serious: Yes (Other)
  Sender: FDA-Public Use
  Company Number: PHHY2015PL175863

PATIENT
  Sex: Male
  Weight: 90 kg

DRUGS (1)
  1. AMOKSIKLAV [Suspect]
     Active Substance: AMOXICILLIN\CLAVULANATE POTASSIUM
     Indication: FACIAL BONES FRACTURE
     Dosage: 1.2 G, UNK
     Route: 042
     Dates: start: 20150325, end: 20150325

REACTIONS (1)
  - Palpitations [Recovered/Resolved]
